FAERS Safety Report 25514243 (Version 1)
Quarter: 2025Q3

REPORT INFORMATION
  Report Type: Spontaneous
  Country: US (occurrence: US)
  Receive Date: 20250703
  Receipt Date: 20250703
  Transmission Date: 20251020
  Serious: No
  Sender: RADIUS PHARM
  Company Number: US-RADIUS HEALTH INC.-2024US010491

PATIENT
  Age: 90 Year
  Sex: Female

DRUGS (1)
  1. TYMLOS [Suspect]
     Active Substance: ABALOPARATIDE
     Indication: Product used for unknown indication
     Route: 058
     Dates: start: 2023

REACTIONS (6)
  - Injection site bruising [Unknown]
  - Product administered at inappropriate site [Unknown]
  - Pain [Unknown]
  - Injection site pain [Unknown]
  - Throat irritation [Unknown]
  - Cough [Unknown]

NARRATIVE: CASE EVENT DATE: 20250123
